FAERS Safety Report 5233466-8 (Version None)
Quarter: 2007Q1

REPORT INFORMATION
  Report Type: 
  Country: None (occurrence: None)
  Receive Date: 20070208
  Receipt Date: 20070130
  Transmission Date: 20070707
  Serious: Yes (Hospitalization)
  Sender: FDA-Public Use
  Company Number: US-BRISTOL-MYERS SQUIBB COMPANY-13662861

PATIENT
  Age: 51 Year

DRUGS (1)
  1. GLUCOPHAGE [Suspect]

REACTIONS (1)
  - HYPOGLYCAEMIA [None]
